FAERS Safety Report 14416504 (Version 8)
Quarter: 2023Q4

REPORT INFORMATION
  Report Type: Spontaneous
  Country: FR (occurrence: FR)
  Receive Date: 20180122
  Receipt Date: 20231222
  Transmission Date: 20240109
  Serious: Yes (Other)
  Sender: FDA-Public Use
  Company Number: FR-EMA-DD-20180206-SHREYAEVHP-112235

PATIENT
  Age: 78 Year
  Sex: Male

DRUGS (12)
  1. ALLOPURINOL [Interacting]
     Active Substance: ALLOPURINOL
     Indication: Product used for unknown indication
     Dosage: UNK
     Route: 065
  2. TRAMADOL [Suspect]
     Active Substance: TRAMADOL\TRAMADOL HYDROCHLORIDE
     Indication: Product used for unknown indication
     Dosage: UNK
     Route: 065
  3. BICALUTAMIDE [Interacting]
     Active Substance: BICALUTAMIDE
     Indication: Prostate cancer
     Dosage: UNK
     Route: 065
  4. CLOZAPINE [Interacting]
     Active Substance: CLOZAPINE
     Indication: Dementia Alzheimer^s type
     Dosage: UNK
     Route: 065
  5. CLOZAPINE [Interacting]
     Active Substance: CLOZAPINE
     Indication: Abnormal behaviour
     Dosage: 25 MILLIGRAM
     Route: 065
  6. CLOZAPINE [Interacting]
     Active Substance: CLOZAPINE
     Dosage: INCREASE IN THE DOSAGE UP TO 25 MG/D ()
     Route: 065
  7. GOSERELIN [Interacting]
     Active Substance: GOSERELIN
     Indication: Androgen therapy
     Dosage: UNK
     Route: 065
  8. GOSERELIN [Interacting]
     Active Substance: GOSERELIN
     Indication: Prostate cancer
     Dosage: ()
     Route: 065
  9. TRAZODONE [Interacting]
     Active Substance: TRAZODONE HYDROCHLORIDE
     Indication: Behaviour disorder
     Dosage: UNK
     Route: 065
  10. ASPIRIN [Concomitant]
     Active Substance: ASPIRIN
     Indication: Product used for unknown indication
     Route: 065
  11. ATORVASTATIN [Concomitant]
     Active Substance: ATORVASTATIN
     Indication: Product used for unknown indication
     Dosage: UNK
     Route: 065
  12. BISOPROLOL [Concomitant]
     Active Substance: BISOPROLOL\BISOPROLOL FUMARATE
     Indication: Product used for unknown indication
     Dosage: UNK
     Route: 065

REACTIONS (2)
  - Electrocardiogram QT prolonged [Recovering/Resolving]
  - Drug interaction [Recovering/Resolving]
